FAERS Safety Report 21402513 (Version 7)
Quarter: 2023Q1

REPORT INFORMATION
  Report Type: Report from Study
  Country: US (occurrence: US)
  Receive Date: 20221003
  Receipt Date: 20230131
  Transmission Date: 20230418
  Serious: No
  Sender: FDA-Public Use
  Company Number: US-NOVARTISTESTPH-NVSC2022US220497

PATIENT
  Sex: Female

DRUGS (2)
  1. KISQALI [Suspect]
     Active Substance: RIBOCICLIB
     Indication: Breast cancer
     Dosage: 600 MG, QD
     Route: 048
     Dates: start: 202209
  2. TYLENOL [Concomitant]
     Active Substance: ACETAMINOPHEN
     Indication: Headache
     Dosage: UNK
     Route: 065

REACTIONS (9)
  - Incontinence [Unknown]
  - Dysphagia [Unknown]
  - Wheezing [Unknown]
  - Dyspnoea exertional [Unknown]
  - Weight bearing difficulty [Unknown]
  - COVID-19 [Unknown]
  - Bone pain [Unknown]
  - White blood cell count decreased [Recovering/Resolving]
  - Back pain [Unknown]
